FAERS Safety Report 5812538-0 (Version None)
Quarter: 2008Q3

REPORT INFORMATION
  Report Type: 
  Country: None (occurrence: None)
  Receive Date: 20080714
  Receipt Date: 20080714
  Transmission Date: 20090109
  Serious: Yes (Other)
  Sender: FDA-Public Use
  Company Number: None

PATIENT
  Age: 53 Year
  Sex: Male
  Weight: 95.2554 kg

DRUGS (6)
  1. PROCRIT [Suspect]
     Indication: ANAEMIA
     Dosage: 10,000 IU, 4.000 IU ONCE WEEKLY
     Dates: start: 20040101, end: 20080707
  2. CELLCEPT [Concomitant]
  3. RAPAMUNE [Concomitant]
  4. ALLOPURINOL [Concomitant]
  5. DIOVAN [Concomitant]
  6. FUROSEMIDE [Concomitant]

REACTIONS (4)
  - ANGER [None]
  - IMPATIENCE [None]
  - IRRITABILITY [None]
  - PHARMACEUTICAL PRODUCT COMPLAINT [None]
